FAERS Safety Report 13741339 (Version 13)
Quarter: 2021Q1

REPORT INFORMATION
  Report Type: Spontaneous
  Country: FR (occurrence: FR)
  Receive Date: 20170711
  Receipt Date: 20210120
  Transmission Date: 20210419
  Serious: Yes (Hospitalization, Other)
  Sender: FDA-Public Use
  Company Number: FR-PFIZER INC-2017293056

PATIENT
  Age: 43 Year
  Sex: Male

DRUGS (41)
  1. HYDROCORTISONE. [Suspect]
     Active Substance: HYDROCORTISONE
     Dosage: UNK
     Route: 065
  2. ACUPAN [Suspect]
     Active Substance: NEFOPAM HYDROCHLORIDE
     Indication: PAIN
     Dosage: 20 MG, Q6HR
     Route: 042
     Dates: start: 2017, end: 2017
  3. AMIKACINE [AMIKACIN] [Suspect]
     Active Substance: AMIKACIN
     Dosage: UNK
     Route: 042
     Dates: start: 20170526, end: 20170529
  4. AMIKACINE [AMIKACIN] [Suspect]
     Active Substance: AMIKACIN
     Dosage: UNK
     Route: 042
     Dates: start: 20170607, end: 20170610
  5. AMIKACINE [AMIKACIN] [Suspect]
     Active Substance: AMIKACIN
     Dosage: UNSPECIFIED
     Route: 042
     Dates: end: 20170610
  6. ZERBAXA [Suspect]
     Active Substance: CEFTOLOZANE SULFATE\TAZOBACTAM SODIUM
     Indication: CELLULITIS
     Dosage: 3 G, QD
     Route: 042
     Dates: start: 20170331
  7. POTASSIUM BICARBONATE/SODIUM ALGINATE [Suspect]
     Active Substance: POTASSIUM BICARBONATE\SODIUM ALGINATE
     Indication: GASTROOESOPHAGEAL REFLUX DISEASE
     Dosage: UNK UNK, TID
     Route: 048
     Dates: start: 2017
  8. VANCOMYCIN [Concomitant]
     Active Substance: VANCOMYCIN
     Dosage: UNK
     Dates: start: 20170529
  9. ZYVOXID [Suspect]
     Active Substance: LINEZOLID
     Dosage: 600 MG, Q12H
     Route: 042
     Dates: start: 201703, end: 20170430
  10. RAMIPRIL. [Concomitant]
     Active Substance: RAMIPRIL
     Indication: PROPHYLAXIS AGAINST TRANSPLANT REJECTION
     Dosage: 2000 MG, QD
     Route: 048
     Dates: start: 20170531
  11. SOLU?MEDROL [Suspect]
     Active Substance: METHYLPREDNISOLONE SODIUM SUCCINATE
     Dosage: 160 MG, QD
     Route: 042
     Dates: start: 2017, end: 20170609
  12. PARACETAMOL [Suspect]
     Active Substance: ACETAMINOPHEN
     Indication: PYREXIA
  13. AMIKACINE [AMIKACIN] [Suspect]
     Active Substance: AMIKACIN
     Dosage: 20 MG, 4X/DAY
     Route: 065
     Dates: start: 2017
  14. TIENAM [Suspect]
     Active Substance: CILASTATIN SODIUM\IMIPENEM
     Dosage: 500 MG
     Route: 042
     Dates: start: 201703, end: 20170403
  15. TARGOCID [Concomitant]
     Active Substance: TEICOPLANIN
     Dosage: UNK
     Dates: start: 20170524, end: 20170529
  16. SMOFKABIVEN [Suspect]
     Active Substance: AMINO ACIDS\DEXTROSE\ELECTROLYTES NOS\SOYBEAN OIL
     Indication: PARENTERAL NUTRITION
     Dosage: 80 ML, Q1HR (1920ML DAILY)
     Route: 042
     Dates: start: 2017, end: 2017
  17. GAVISCON [Suspect]
     Active Substance: ALUMINUM HYDROXIDE\MAGNESIUM CARBONATE
     Indication: GASTROOESOPHAGEAL REFLUX DISEASE
     Dosage: 3 DF, 3X/DAY  (IF NEEDED)
     Route: 048
     Dates: start: 2017, end: 2017
  18. EUPRESSYL [Suspect]
     Active Substance: URAPIDIL
     Indication: HYPERTENSION
     Dosage: 2 MG, Q1HR
     Route: 042
     Dates: start: 201703, end: 20170330
  19. ZELITREX [Interacting]
     Active Substance: VALACYCLOVIR HYDROCHLORIDE
     Indication: PROPHYLAXIS
     Dosage: UNK
     Route: 048
     Dates: start: 20170504
  20. KEPPRA [Suspect]
     Active Substance: LEVETIRACETAM
     Indication: EPILEPSY
     Dosage: 1000 MG, QD
     Route: 048
     Dates: start: 20170422
  21. SPASFON [PHLOROGLUCINOL] [Suspect]
     Active Substance: PHLOROGLUCINOL
     Indication: ABDOMINAL PAIN
     Dosage: IF ABDOMINAL PAIN
     Route: 048
     Dates: start: 2017, end: 2017
  22. CYMEVAN [Interacting]
     Active Substance: GANCICLOVIR
     Indication: PROPHYLAXIS
     Dosage: UNK
     Route: 042
     Dates: start: 20170330, end: 20170504
  23. TIENAM [Suspect]
     Active Substance: CILASTATIN SODIUM\IMIPENEM
     Dosage: 500 MG, 3X/DAY (ONCE PER 8 HOURS)
     Route: 042
     Dates: start: 201703, end: 20170403
  24. AMLOR [Concomitant]
     Active Substance: AMLODIPINE BESYLATE
     Indication: EPILEPSY
     Dosage: 1000 MG, QD
     Route: 048
     Dates: start: 20170526, end: 20170531
  25. CANCIDAS [Suspect]
     Active Substance: CASPOFUNGIN ACETATE
     Indication: FUNGAL INFECTION
     Dosage: 70 MG, QD
     Route: 042
     Dates: start: 201703, end: 2017
  26. GAVISCON [Suspect]
     Active Substance: ALUMINUM HYDROXIDE\MAGNESIUM CARBONATE
     Dosage: 3 DF, 1X/DAY IF NECESSARY
     Route: 048
     Dates: start: 2017, end: 2017
  27. SPASFON [PHLOROGLUCINOL] [Suspect]
     Active Substance: PHLOROGLUCINOL
     Indication: PAIN
  28. AMIKACINE [AMIKACIN] [Suspect]
     Active Substance: AMIKACIN
     Indication: PAIN
     Dosage: UNK
     Route: 042
     Dates: start: 20170403, end: 20170408
  29. BISOPROLOL [Concomitant]
     Active Substance: BISOPROLOL
     Indication: PROPHYLAXIS
     Dosage: UNK
     Route: 048
     Dates: start: 20170531
  30. EUPANTOL [Suspect]
     Active Substance: PANTOPRAZOLE SODIUM
     Indication: GASTROOESOPHAGEAL REFLUX DISEASE
     Dosage: 40 MG, QD
     Route: 042
     Dates: start: 2017, end: 2017
  31. NEORAL [Suspect]
     Active Substance: CYCLOSPORINE
     Indication: PROPHYLAXIS AGAINST TRANSPLANT REJECTION
     Dosage: 40 MG, BID
     Route: 048
     Dates: start: 2017, end: 2017
  32. BACTRIM [Suspect]
     Active Substance: SULFAMETHOXAZOLE\TRIMETHOPRIM
     Indication: PNEUMOCYSTIS JIROVECII PNEUMONIA
     Dosage: 800 MG, QD
     Route: 048
     Dates: start: 201703, end: 20170526
  33. AMIKACINE [AMIKACIN] [Suspect]
     Active Substance: AMIKACIN
     Dosage: UNK
     Route: 042
     Dates: start: 20170421, end: 20170424
  34. MAGNESIUM ALGINATE/SODIUM ALGINATE [Suspect]
     Active Substance: MAGNESIUM ALGINATE\SODIUM ALGINATE
     Indication: GASTROOESOPHAGEAL REFLUX DISEASE
     Dosage: 1 DF, EVERY 8 HOURS
     Route: 048
     Dates: start: 2017
  35. EUPANTOL [Suspect]
     Active Substance: PANTOPRAZOLE SODIUM
     Indication: GASTROOESOPHAGEAL REFLUX DISEASE
     Dosage: 40 MG, 1X/DAY
     Route: 042
     Dates: start: 2017
  36. WELLVONE [Concomitant]
     Active Substance: ATOVAQUONE
     Dosage: UNK
     Dates: start: 20170526
  37. PARACETAMOL [Suspect]
     Active Substance: ACETAMINOPHEN
     Indication: PAIN
     Dosage: 3 G, 1X/DAY (IF PAIN OR FEVER)
     Route: 048
     Dates: start: 2017, end: 2017
  38. TIORFAN [Suspect]
     Active Substance: RACECADOTRIL
     Indication: DIARRHOEA
     Dosage: 600 MG, QD
     Route: 048
     Dates: start: 2017, end: 2017
  39. URSOLVAN [Suspect]
     Active Substance: URSODIOL
     Dosage: 200 MG, UNK
     Route: 048
     Dates: start: 20170331
  40. DITROPAN [Suspect]
     Active Substance: OXYBUTYNIN CHLORIDE
     Dosage: 5 MG, TID
     Route: 048
     Dates: start: 2017, end: 20170509
  41. CELLCEPT [Suspect]
     Active Substance: MYCOPHENOLATE MOFETIL\MYCOPHENOLATE MOFETIL HYDROCHLORIDE
     Indication: PROPHYLAXIS AGAINST TRANSPLANT REJECTION
     Dosage: 2000 MG, QD
     Route: 048
     Dates: start: 2017

REACTIONS (4)
  - Amnesia [Recovering/Resolving]
  - Confusional state [Recovering/Resolving]
  - Drug interaction [Unknown]
  - Pancytopenia [Recovered/Resolved]

NARRATIVE: CASE EVENT DATE: 20170329
